FAERS Safety Report 8687984 (Version 2)
Quarter: 2016Q1

REPORT INFORMATION
  Report Type: Spontaneous
  Country: FR (occurrence: FR)
  Receive Date: 20120727
  Receipt Date: 20160114
  Transmission Date: 20160526
  Serious: Yes (Other)
  Sender: FDA-Public Use
  Company Number: FR-BRISTOL-MYERS SQUIBB COMPANY-15941412

PATIENT
  Age: 39 Year
  Sex: Female
  Weight: 80 kg

DRUGS (4)
  1. LARGACTIL [Suspect]
     Active Substance: CHLORPROMAZINE
     Indication: ANXIOLYTIC THERAPY
     Dosage: 50 MG, QD
     Route: 048
  2. RISPERDAL [Suspect]
     Active Substance: RISPERIDONE
     Indication: SCHIZOPHRENIA
     Dosage: 50 MG, Q2WK
     Route: 030
  3. VALIUM [Suspect]
     Active Substance: DIAZEPAM
     Indication: ANXIOLYTIC THERAPY
     Dosage: 5 MG, QD
     Route: 048
  4. ABILIFY [Suspect]
     Active Substance: ARIPIPRAZOLE
     Indication: SCHIZOPHRENIA
     Dosage: 10 MG, QD
     Route: 048

REACTIONS (5)
  - Live birth [Unknown]
  - Maternal exposure during pregnancy [Recovered/Resolved]
  - Caesarean section [Unknown]
  - Gestational diabetes [Unknown]
  - Oligohydramnios [Unknown]

NARRATIVE: CASE EVENT DATE: 20120127
